FAERS Safety Report 24002002 (Version 2)
Quarter: 2024Q2

REPORT INFORMATION
  Report Type: Report from Study
  Country: US (occurrence: US)
  Receive Date: 20240622
  Receipt Date: 20240629
  Transmission Date: 20240716
  Serious: Yes (Hospitalization)
  Sender: FDA-Public Use
  Company Number: US-UCBSA-2024031684

PATIENT
  Sex: Female

DRUGS (1)
  1. ROZANOLIXIZUMAB [Suspect]
     Active Substance: ROZANOLIXIZUMAB
     Indication: Myasthenia gravis
     Dosage: UNK
     Dates: start: 202404, end: 202404

REACTIONS (7)
  - Adverse drug reaction [Unknown]
  - Vomiting [Recovered/Resolved]
  - Diarrhoea [Recovered/Resolved]
  - Gait inability [Recovered/Resolved]
  - Nail discolouration [Recovered/Resolved]
  - Vision blurred [Not Recovered/Not Resolved]
  - Asthenia [Recovered/Resolved]

NARRATIVE: CASE EVENT DATE: 20240401
